FAERS Safety Report 4265106-9 (Version None)
Quarter: 2004Q1

REPORT INFORMATION
  Report Type: 
  Country: None (occurrence: None)
  Receive Date: 20040106
  Receipt Date: 20040106
  Transmission Date: 20041129
  Serious: Yes (Hospitalization)
  Sender: FDA-Public Use
  Company Number: None

PATIENT
  Age: 42 Year
  Sex: Female
  Weight: 70.3075 kg

DRUGS (1)
  1. AZACTAM [Suspect]
     Indication: SINUSITIS
     Dosage: 2 GM IV Q 8 H
     Route: 042
     Dates: start: 20030905, end: 20030909

REACTIONS (2)
  - BURNING SENSATION [None]
  - PARAESTHESIA [None]
